FAERS Safety Report 16891323 (Version 5)
Quarter: 2020Q1

REPORT INFORMATION
  Report Type: Other
  Country: NL (occurrence: NL)
  Receive Date: 20191007
  Receipt Date: 20200121
  Transmission Date: 20200409
  Serious: Yes (Hospitalization, Other)
  Sender: FDA-Public Use
  Company Number: NL-ASPEN-GLO2019NL010219

PATIENT
  Age: 67 Year
  Sex: Female
  Weight: 54 kg

DRUGS (22)
  1. RIVAROXABAN [Concomitant]
     Active Substance: RIVAROXABAN
     Dosage: UNK
     Route: 048
  2. FLECAINIDE [Concomitant]
     Active Substance: FLECAINIDE
     Indication: HYPOTHYROIDISM
     Dosage: 50 MG, QD
     Route: 048
  3. PREDNISONE. [Concomitant]
     Active Substance: PREDNISONE
     Indication: STEROID WITHDRAWAL SYNDROME
     Dosage: 20 MG, 1 DOSE DAILY
     Route: 048
     Dates: start: 20190809
  4. LENALIDOMIDE [Suspect]
     Active Substance: LENALIDOMIDE
     Indication: PLASMA CELL MYELOMA
     Dosage: 25 MG, 1 DOSE DAILY. MOST RECENT DOSE:12/AUG/2019
     Route: 048
     Dates: start: 20190705, end: 20190719
  5. VELCADE [Suspect]
     Active Substance: BORTEZOMIB
     Indication: PLASMA CELL MYELOMA
     Dosage: 2.2 MG
     Route: 058
     Dates: start: 20190705, end: 20190712
  6. FOLIUMZUUR [Concomitant]
     Active Substance: FOLIC ACID
     Indication: FOLATE DEFICIENCY
     Dosage: 15 MG, 1 DOSE DAILY
     Route: 048
     Dates: start: 20190802
  7. FLUCONAZOLE. [Concomitant]
     Active Substance: FLUCONAZOLE
     Indication: ANTIFUNGAL PROPHYLAXIS
     Dosage: 200 MG, 1 DOSE DAILY
     Route: 048
     Dates: start: 20190705
  8. VELCADE [Suspect]
     Active Substance: BORTEZOMIB
     Dosage: MOST RECENT DOSE:12/AUG/2019; DOSE VARIED FROM 2.0 MG TO 2.5
     Route: 058
  9. LEVOTHYROXINE. [Concomitant]
     Active Substance: LEVOTHYROXINE
     Indication: HYPOTHYROIDISM
     Dosage: 50 ?G, 1 DOSE DAILY
     Route: 048
  10. METOCLOPRAMIDE. [Concomitant]
     Active Substance: METOCLOPRAMIDE
     Indication: NAUSEA
     Dosage: 30 MG
     Route: 048
  11. DEXAMETHASONE. [Suspect]
     Active Substance: DEXAMETHASONE
     Dosage: 75 MG, QD
     Route: 048
  12. OXAZEPAM. [Concomitant]
     Active Substance: OXAZEPAM
     Indication: SLEEP DISORDER
     Dosage: 10 MG
     Route: 048
  13. VALACICLOVIR [Concomitant]
     Active Substance: VALACYCLOVIR HYDROCHLORIDE
     Indication: ANTIVIRAL PROPHYLAXIS
     Dosage: 1000 MG, 1 DOSE DAILY
     Route: 048
     Dates: start: 20190705
  14. DEXAMETHASONE. [Suspect]
     Active Substance: DEXAMETHASONE
     Indication: PLASMA CELL MYELOMA
     Dosage: 40 MG. MOST RECENT DOSE 12-AUG-2019
     Route: 048
     Dates: start: 20190705, end: 20190716
  15. COTRIMOXAZOLE [Concomitant]
     Active Substance: SULFAMETHOXAZOLE\TRIMETHOPRIM
     Indication: INFECTION PROPHYLAXIS
     Dosage: 960 MG, 1 DOSE DAILY
     Route: 048
     Dates: start: 20190705
  16. METOPROLOL SUCCINATE. [Concomitant]
     Active Substance: METOPROLOL SUCCINATE
     Indication: ATRIAL FIBRILLATION
  17. RIVAROXABAN [Concomitant]
     Active Substance: RIVAROXABAN
     Indication: ANTICOAGULANT THERAPY
     Dosage: 20 MG, 1 DOSE DAILY
     Route: 048
     Dates: start: 20180622
  18. FLECAINIDE [Concomitant]
     Active Substance: FLECAINIDE
     Indication: ATRIAL FIBRILLATION
     Dosage: 100 MG, 1 DOSE DAILY
     Route: 048
  19. PREGABALIN. [Concomitant]
     Active Substance: PREGABALIN
     Indication: ANXIETY
     Dosage: 150 MG, 1 DOSE DAILY
     Route: 048
  20. PREGABALIN. [Concomitant]
     Active Substance: PREGABALIN
     Dosage: 75 MG 1 DOSE DAILY
     Route: 048
  21. METOPROLOL SUCCINATE. [Concomitant]
     Active Substance: METOPROLOL SUCCINATE
     Indication: HYPOTHYROIDISM
     Dosage: TABLET 50 MG DAILY
     Route: 048
     Dates: start: 20150703
  22. ZOLPIDEM [Concomitant]
     Active Substance: ZOLPIDEM TARTRATE
     Indication: SLEEP DISORDER
     Dosage: 10 MG
     Route: 048
     Dates: start: 20190621

REACTIONS (1)
  - Syncope [Recovering/Resolving]

NARRATIVE: CASE EVENT DATE: 20190719
